FAERS Safety Report 6297806-3 (Version None)
Quarter: 2009Q3

REPORT INFORMATION
  Report Type: 
  Country: None (occurrence: None)
  Receive Date: 20090805
  Receipt Date: 20090724
  Transmission Date: 20100115
  Serious: Yes (Other)
  Sender: FDA-Public Use
  Company Number: US-PFIZER INC-2009245823

PATIENT
  Sex: Female
  Weight: 63.492 kg

DRUGS (2)
  1. DILANTIN [Suspect]
     Indication: CONVULSION
     Dosage: 300 MG, 1X/DAY
     Dates: start: 19880101
  2. PHENYTOIN [Suspect]
     Indication: CONVULSION
     Dosage: 300 MG, 1X/DAY

REACTIONS (9)
  - ANTICONVULSANT DRUG LEVEL INCREASED [None]
  - BALANCE DISORDER [None]
  - CONVULSION [None]
  - DRUG TOXICITY [None]
  - FEELING JITTERY [None]
  - IRRITABILITY [None]
  - PHOTOPHOBIA [None]
  - PRODUCT SUBSTITUTION ISSUE [None]
  - SOMNOLENCE [None]
